FAERS Safety Report 7813334-5 (Version None)
Quarter: 2011Q4

REPORT INFORMATION
  Report Type: 
  Country: None (occurrence: None)
  Receive Date: 20111013
  Receipt Date: 20110929
  Transmission Date: 20120403
  Serious: Yes (Other)
  Sender: FDA-Public Use
  Company Number: US-ROCHE-1002378

PATIENT
  Sex: Female

DRUGS (8)
  1. ACCUTANE [Suspect]
     Route: 065
     Dates: start: 20050101, end: 20050401
  2. SOTRET [Suspect]
     Route: 065
     Dates: start: 20050101, end: 20050401
  3. CLARAVIS [Suspect]
     Route: 065
     Dates: start: 20050101, end: 20050401
  4. AMNESTEEM [Suspect]
     Indication: ACNE
     Route: 065
     Dates: start: 20001001, end: 20010301
  5. CLARAVIS [Suspect]
     Indication: ACNE
     Route: 065
     Dates: start: 20001001, end: 20010301
  6. AMNESTEEM [Suspect]
     Route: 065
     Dates: start: 20050101, end: 20050401
  7. ACCUTANE [Suspect]
     Indication: PRODUCT USED FOR UNKNOWN INDICATION
     Route: 065
     Dates: start: 20001001, end: 20010301
  8. SOTRET [Suspect]
     Indication: ACNE
     Route: 065
     Dates: start: 20001001, end: 20010301

REACTIONS (3)
  - IRRITABLE BOWEL SYNDROME [None]
  - INFLAMMATORY BOWEL DISEASE [None]
  - ANXIETY [None]
